FAERS Safety Report 7760963-3 (Version None)
Quarter: 2011Q3

REPORT INFORMATION
  Report Type: 
  Country: None (occurrence: None)
  Receive Date: 20110920
  Receipt Date: 20110909
  Transmission Date: 20111222
  Serious: Yes (Hospitalization)
  Sender: FDA-Public Use
  Company Number: FR-BRISTOL-MYERS SQUIBB COMPANY-16066623

PATIENT
  Age: 59 Year
  Sex: Male

DRUGS (10)
  1. FLUOROURACIL [Suspect]
     Indication: LARYNGEAL CANCER
     Dosage: FLUOROURACIL SANOFI,D1 TO D4
     Route: 042
     Dates: start: 20110726, end: 20110818
  2. DURAGESIC-100 [Concomitant]
  3. FRESUBIN [Concomitant]
  4. ZOFRAN [Suspect]
     Dosage: 1 DF : ACCORDING TO CYCLE
     Route: 042
     Dates: start: 20110726, end: 20110816
  5. CLINUTREN [Concomitant]
  6. ERBITUX [Suspect]
     Indication: LARYNGEAL CANCER
     Dosage: 5TH INF
     Route: 042
     Dates: start: 20110719, end: 20110816
  7. RANITIDINE [Concomitant]
     Indication: PREMEDICATION
  8. CARBOPLATIN [Suspect]
     Indication: LARYNGEAL CANCER
     Dosage: ACCORDING TO CYCLE,CARBOPLATIN HOSPIRA,2ND INF
     Route: 042
     Dates: start: 20110726, end: 20110816
  9. SOLU-MEDROL [Concomitant]
     Indication: PREMEDICATION
  10. POLARAMINE [Concomitant]
     Indication: PREMEDICATION

REACTIONS (2)
  - VENTRICULAR TACHYCARDIA [None]
  - MYOCARDITIS [None]
